FAERS Safety Report 7611346-8 (Version None)
Quarter: 2011Q3

REPORT INFORMATION
  Report Type: 
  Country: None (occurrence: None)
  Receive Date: 20110707
  Receipt Date: 20110629
  Transmission Date: 20111222
  Serious: Yes (Other)
  Sender: FDA-Public Use
  Company Number: 2010SP062584

PATIENT
  Age: 35 Year
  Sex: Female
  Weight: 106.5953 kg

DRUGS (1)
  1. NUVARING [Suspect]
     Indication: CONTRACEPTION
     Dates: start: 20070301, end: 20080101

REACTIONS (22)
  - PORTAL VEIN THROMBOSIS [None]
  - ABDOMINAL PAIN UPPER [None]
  - GASTROOESOPHAGEAL REFLUX DISEASE [None]
  - NEPHROLITHIASIS [None]
  - HEPATIC CYST [None]
  - HEADACHE [None]
  - DIZZINESS [None]
  - MENORRHAGIA [None]
  - BURNS THIRD DEGREE [None]
  - LIVER FUNCTION TEST ABNORMAL [None]
  - ARTHRALGIA [None]
  - ABORTION [None]
  - THROMBOSIS [None]
  - IRON DEFICIENCY ANAEMIA [None]
  - SLEEP DISORDER [None]
  - HAEMORRHOIDS [None]
  - FLANK PAIN [None]
  - GASTRIC DISORDER [None]
  - SCAR [None]
  - URINARY TRACT INFECTION [None]
  - BLOOD CHOLESTEROL INCREASED [None]
  - VULVOVAGINITIS TRICHOMONAL [None]
